FAERS Safety Report 19718255 (Version 1)
Quarter: 2021Q3

REPORT INFORMATION
  Report Type: Spontaneous
  Country: DE (occurrence: DE)
  Receive Date: 20210818
  Receipt Date: 20210818
  Transmission Date: 20211014
  Serious: Yes (Other)
  Sender: FDA-Public Use
  Company Number: DE-INCYTE CORPORATION-2021IN007253

PATIENT

DRUGS (1)
  1. JAKAVI [Suspect]
     Active Substance: RUXOLITINIB
     Indication: PRODUCT USED FOR UNKNOWN INDICATION
     Dosage: 50 MG, DAILY (2X 25 MG) (FOR ABOUT 5 YEARS)
     Route: 065

REACTIONS (5)
  - Therapeutic response decreased [Unknown]
  - Weight decreased [Unknown]
  - Pyrexia [Unknown]
  - Night sweats [Unknown]
  - Disease progression [Unknown]
